FAERS Safety Report 8899523 (Version 1)
Quarter: 2012Q4

REPORT INFORMATION
  Report Type: 
  Country: SE (occurrence: SE)
  Receive Date: 20121109
  Receipt Date: 20121109
  Transmission Date: 20130627
  Serious: Yes (Hospitalization)
  Sender: FDA-Public Use
  Company Number: SE-PFIZER INC-2012277920

PATIENT
  Age: 84 Year
  Sex: Female
  Weight: 45.5 kg

DRUGS (14)
  1. GENOTROPIN [Suspect]
     Dosage: 0.4 mg, 1x/day, 7 injections/week
     Route: 058
     Dates: start: 19960926
  2. BROMOCRIPTINE [Concomitant]
     Indication: GALACTOSAEMIA
     Dosage: UNK
     Dates: start: 19820101
  3. CYANOCOBALAMIN [Concomitant]
     Indication: ANAEMIA VITAMIN B12 DEFICIENCY
     Dosage: UNK
     Dates: start: 19960710
  4. FERROSULFAT [Concomitant]
     Indication: IRON DEFICIENCY ANAEMIA
     Dosage: UNK
     Dates: start: 19960710
  5. RENITEC [Concomitant]
     Indication: HYPERTONIC UTERINE CONTRACTION
     Dosage: UNK
     Dates: start: 19970305
  6. SALURES-K [Concomitant]
     Indication: HYPERTONIC UTERINE CONTRACTION
     Dosage: UNK
     Dates: start: 19971112
  7. TENORMIN [Concomitant]
     Indication: ESSENTIAL HYPERTENSION
     Dosage: UNK
     Dates: start: 19980514
  8. DUROFERON VITAMIN [Concomitant]
     Indication: ANAEMIA
     Dosage: UNK
     Dates: start: 19980901
  9. CORTISONE ACETATE [Concomitant]
     Indication: ACTH DECREASED
     Dosage: UNK
     Dates: start: 19820501
  10. KALCIUM D-VITAMIN [Concomitant]
     Indication: OSTEOPOROSIS
     Dosage: UNK
     Dates: start: 20000509
  11. LASIX RETARD [Concomitant]
     Indication: ESSENTIAL HYPERTENSION
     Dosage: UNK
     Dates: start: 20000509
  12. LEVOTHYROXINE [Concomitant]
     Indication: THYROID DISORDER
     Dosage: UNK
     Dates: start: 19820101
  13. LEVOTHYROXINE [Concomitant]
     Indication: PRIMARY HYPOTHYROIDISM
  14. HYDROCHLOROTHIAZID [Concomitant]
     Indication: ESSENTIAL HYPERTENSION
     Dosage: UNK
     Dates: start: 19820101

REACTIONS (1)
  - Arthropathy [Unknown]
